FAERS Safety Report 5658486-0 (Version None)
Quarter: 2008Q1

REPORT INFORMATION
  Report Type: 
  Country: None (occurrence: None)
  Receive Date: 20080310
  Receipt Date: 20070430
  Transmission Date: 20080703
  Serious: Yes (Other)
  Sender: FDA-Public Use
  Company Number: US-BAYER-200710596BCC

PATIENT
  Age: 60 Year
  Sex: Female
  Weight: 77 kg

DRUGS (7)
  1. ALEVE [Suspect]
     Indication: ARTHRALGIA
     Dosage: UNIT DOSE: 220 MG
     Route: 048
     Dates: start: 20070222
  2. ANACIN [Suspect]
     Indication: DRUG USE FOR UNKNOWN INDICATION
     Dates: start: 20070222
  3. BLOOD PRESSURE MEDICATION [Suspect]
     Indication: HYPERTENSION
     Dates: start: 20070222
  4. SYNTHROID [Suspect]
     Indication: DRUG USE FOR UNKNOWN INDICATION
     Dates: start: 20070222
  5. ONE-A-DAY VITAMIN [Suspect]
     Indication: MEDICAL DIET
     Dates: start: 20070222
  6. PREVACID [Concomitant]
  7. ZESTRIL [Concomitant]

REACTIONS (5)
  - DIARRHOEA HAEMORRHAGIC [None]
  - ERYTHEMA [None]
  - HYPERSENSITIVITY [None]
  - OCULAR HYPERAEMIA [None]
  - PHARYNGEAL OEDEMA [None]
